FAERS Safety Report 22103154 (Version 2)
Quarter: 2023Q1

REPORT INFORMATION
  Report Type: Spontaneous
  Country: JP (occurrence: JP)
  Receive Date: 20230316
  Receipt Date: 20230323
  Transmission Date: 20230418
  Serious: Yes (Hospitalization, Other)
  Sender: FDA-Public Use
  Company Number: JP-MSD-M2022-48025

PATIENT
  Age: 77 Year
  Sex: Male

DRUGS (2)
  1. KEYTRUDA [Suspect]
     Active Substance: PEMBROLIZUMAB
     Indication: Renal cell carcinoma stage II
     Dosage: 200 MILLIGRAM, Q3W
     Route: 041
     Dates: start: 20220707, end: 20220707
  2. LENVATINIB MESYLATE [Suspect]
     Active Substance: LENVATINIB MESYLATE
     Indication: Renal cell carcinoma stage II
     Dosage: 20 MILLIGRAM, QD
     Route: 048
     Dates: start: 20220707, end: 20220719

REACTIONS (5)
  - Blood pressure decreased [Recovered/Resolved]
  - Pneumonia [Recovered/Resolved]
  - Aspartate aminotransferase increased [Unknown]
  - Pyrexia [Recovered/Resolved]
  - Malaise [Unknown]

NARRATIVE: CASE EVENT DATE: 20220719
